FAERS Safety Report 23436510 (Version 1)
Quarter: 2024Q1

REPORT INFORMATION
  Report Type: Report from Study
  Country: BR (occurrence: BR)
  Receive Date: 20240124
  Receipt Date: 20240124
  Transmission Date: 20240410
  Serious: Yes (Other)
  Sender: FDA-Public Use
  Company Number: BR-JNJFOC-20231253100

PATIENT
  Age: 67 Year
  Sex: Female
  Weight: 77 kg

DRUGS (5)
  1. JANSSEN COVID-19 VACCINE [Suspect]
     Active Substance: AD26.COV2.S
     Indication: COVID-19 prophylaxis
     Dosage: DOSE NUMBER IN SERIES: 1
     Route: 065
  2. GOLIMUMAB [Suspect]
     Active Substance: GOLIMUMAB
     Indication: Rheumatoid arthritis
     Route: 058
     Dates: start: 20231112
  3. GOLIMUMAB [Suspect]
     Active Substance: GOLIMUMAB
  4. PRISTIN [Concomitant]
     Indication: Product used for unknown indication
     Dosage: 3 TABLETS ON AN EMPTY STOMACH
     Route: 065
  5. ISONIAZID [Concomitant]
     Active Substance: ISONIAZID
     Indication: Product used for unknown indication
     Dosage: 6 TABLETS AFTER FASTING.
     Route: 065

REACTIONS (2)
  - Pneumonia [Unknown]
  - Nasopharyngitis [Unknown]
